FAERS Safety Report 4433411-9 (Version None)
Quarter: 2004Q3

REPORT INFORMATION
  Report Type: 
  Country: None (occurrence: None)
  Receive Date: 20040824
  Receipt Date: 20040811
  Transmission Date: 20050211
  Serious: Yes (Life-Threatening)
  Sender: FDA-Public Use
  Company Number: 2004054993

PATIENT
  Age: 68 Year
  Sex: Female

DRUGS (4)
  1. UNASYN [Suspect]
     Indication: BACTERIAL INFECTION
     Dosage: 9 GRAM (3 GRAM, 3 IN 1D), INTRAVENOUS
     Dates: start: 20040807, end: 20040810
  2. ZOLOFT [Suspect]
     Indication: ILL-DEFINED DISORDER
     Dosage: 50 MG (50 MG, 1 IN 1 D), ORAL
     Route: 048
     Dates: start: 20040804
  3. AMITRIPTYLINE HCL [Suspect]
     Indication: ILL-DEFINED DISORDER
     Dosage: 14 MG (40 MG/ML, 1 IN 1 D), ORAL
     Route: 048
     Dates: start: 20040804
  4. NADROPARIN CALCIUM (NADROPARIN CALCIUM) [Concomitant]

REACTIONS (1)
  - BONE MARROW DEPRESSION [None]
